FAERS Safety Report 9793036 (Version 1)
Quarter: 2014Q1

REPORT INFORMATION
  Report Type: Spontaneous
  Country: US (occurrence: US)
  Receive Date: 20140102
  Receipt Date: 20140102
  Transmission Date: 20141002
  Serious: No
  Sender: FDA-Public Use
  Company Number: US-GILEAD-2013-0091001

PATIENT
  Age: 69 Year
  Sex: Female

DRUGS (13)
  1. LETAIRIS [Suspect]
     Indication: PULMONARY HYPERTENSION
     Dosage: 10 MG, QD
     Route: 065
     Dates: start: 20120516
  2. DOXICYCLINE /00055701/ [Suspect]
  3. DIOVAN [Concomitant]
  4. VERAPAMIL [Concomitant]
  5. SYNTHROID [Concomitant]
  6. URSODIOL [Concomitant]
  7. WELLBUTRIN [Concomitant]
  8. WARFARIN [Concomitant]
  9. LASIX                              /00032601/ [Concomitant]
  10. VIT D [Concomitant]
  11. OMEPRAZOLE [Concomitant]
  12. POTASSIUM [Concomitant]
  13. OXYGEN [Concomitant]

REACTIONS (3)
  - Bronchitis [Not Recovered/Not Resolved]
  - Cough [Not Recovered/Not Resolved]
  - Dyspnoea [Not Recovered/Not Resolved]
